FAERS Safety Report 25238088 (Version 1)
Quarter: 2025Q2

REPORT INFORMATION
  Report Type: Spontaneous
  Country: KR (occurrence: KR)
  Receive Date: 20250425
  Receipt Date: 20250425
  Transmission Date: 20250716
  Serious: Yes (Hospitalization)
  Sender: CHEPLAPHARM
  Company Number: KR-ROCHE-3295321

PATIENT
  Age: 47 Year
  Sex: Female

DRUGS (14)
  1. CAPECITABINE [Suspect]
     Active Substance: CAPECITABINE
     Indication: Triple negative breast cancer
     Dosage: DAY 1-14, FOR 8 CYCLES
     Route: 048
     Dates: start: 20221102, end: 20230224
  2. ATEZOLIZUMAB [Suspect]
     Active Substance: ATEZOLIZUMAB
     Indication: Triple negative breast cancer
     Dosage: IV DRIP
     Route: 042
     Dates: start: 20221102
  3. CEFAZOLIN [Concomitant]
     Active Substance: CEFAZOLIN
     Dates: start: 20230207, end: 20230207
  4. CALCIUM CHLORIDE\POTASSIUM CHLORIDE\SODIUM CHLORIDE\SODIUM LACTATE [Concomitant]
     Active Substance: CALCIUM CHLORIDE\POTASSIUM CHLORIDE\SODIUM CHLORIDE\SODIUM LACTATE
     Dates: start: 20230207, end: 20230207
  5. SODIUM CHLORIDE [Concomitant]
     Active Substance: SODIUM CHLORIDE
     Dates: start: 20230207, end: 20230207
  6. Easyef [Concomitant]
     Dates: start: 20230207, end: 20230207
  7. GASTER [Concomitant]
     Active Substance: FAMOTIDINE
     Dates: start: 20230207, end: 20230207
  8. FENTANYL [Concomitant]
     Active Substance: FENTANYL
     Dates: start: 20230207, end: 20230207
  9. MIDAZOLAM [Concomitant]
     Active Substance: MIDAZOLAM
     Dates: start: 20230207, end: 20230207
  10. Fresofol MCT [Concomitant]
     Dates: start: 20230207, end: 20230207
  11. ULTIVA [Concomitant]
     Active Substance: REMIFENTANIL HYDROCHLORIDE
     Dates: start: 20230207, end: 20230207
  12. SODIUM CHLORIDE [Concomitant]
     Active Substance: SODIUM CHLORIDE
     Dates: start: 20230207, end: 20230207
  13. ROCURONIUM [Concomitant]
     Active Substance: ROCURONIUM BROMIDE
     Dates: start: 20230207, end: 20230207
  14. BRIDION [Concomitant]
     Active Substance: SUGAMMADEX SODIUM
     Dates: start: 20230207, end: 20230207

REACTIONS (2)
  - Fall [Unknown]
  - Wrist fracture [Recovered/Resolved]

NARRATIVE: CASE EVENT DATE: 20230204
